FAERS Safety Report 8069670-3 (Version None)
Quarter: 2012Q1

REPORT INFORMATION
  Report Type: 
  Country: None (occurrence: None)
  Receive Date: 20120125
  Receipt Date: 20120116
  Transmission Date: 20120608
  Serious: Yes (Death)
  Sender: FDA-Public Use
  Company Number: US-ROXANE LABORATORIES, INC.-2012-EU-00474GD

PATIENT
  Age: 38 Year
  Sex: Male

DRUGS (5)
  1. METHADONE HCL [Suspect]
     Route: 048
  2. OXYCODONE HCL [Suspect]
     Route: 048
  3. ACETAMINOPHEN [Suspect]
     Route: 048
  4. ALPRAZOLAM [Suspect]
     Route: 048
  5. CITALOPRAM HYDROBROMIDE [Suspect]
     Route: 048

REACTIONS (3)
  - CARDIAC ARREST [None]
  - DRUG ABUSE [None]
  - RESPIRATORY ARREST [None]
